FAERS Safety Report 9715146 (Version 2)
Quarter: 2014Q1

REPORT INFORMATION
  Report Type: Spontaneous
  Country: US (occurrence: US)
  Receive Date: 20131126
  Receipt Date: 20140122
  Transmission Date: 20141002
  Serious: Yes (Death, Other)
  Sender: FDA-Public Use
  Company Number: US-GILEAD-2013-0088660

PATIENT
  Sex: Male

DRUGS (6)
  1. LETAIRIS [Suspect]
     Indication: PULMONARY HYPERTENSION
     Dosage: 5 MG, QD
     Route: 048
     Dates: start: 20130920
  2. LETAIRIS [Suspect]
     Indication: AORTIC STENOSIS
  3. LETAIRIS [Suspect]
     Indication: CHRONIC OBSTRUCTIVE PULMONARY DISEASE
  4. LETAIRIS [Suspect]
     Indication: DIASTOLIC DYSFUNCTION
  5. LETAIRIS [Suspect]
     Indication: CHEMOTHERAPY
  6. DASATINIB [Concomitant]
     Indication: CHRONIC MYELOID LEUKAEMIA

REACTIONS (1)
  - Cardiopulmonary failure [Fatal]
